FAERS Safety Report 9788105 (Version 1)
Quarter: 2013Q4

REPORT INFORMATION
  Report Type: Spontaneous
  Country: US (occurrence: None)
  Receive Date: 20131227
  Receipt Date: 20131227
  Transmission Date: 20140711
  Serious: Yes (Hospitalization)
  Sender: FDA-Public Use
  Company Number: None

PATIENT
  Age: 65 Year
  Sex: Male
  Weight: 53.1 kg

DRUGS (10)
  1. OXYCODONE [Suspect]
     Indication: PAIN
     Dosage: 30 MG Q6HR PRN BREAKTHROUGH
     Route: 048
  2. OPANA [Suspect]
     Indication: PAIN
     Dosage: CHRONIC USE 30 MG BID PO
     Route: 048
  3. TIZANIDINE [Suspect]
  4. PHENERGAN [Suspect]
  5. CYMBALTA [Suspect]
  6. NORVASC [Concomitant]
  7. SPIRIVA [Concomitant]
  8. ALBUTEROL [Concomitant]
  9. LEVOTHYROXINE [Concomitant]
  10. NEURONTIN [Concomitant]

REACTIONS (1)
  - Encephalopathy [None]
